FAERS Safety Report 23885453 (Version 3)
Quarter: 2024Q2

REPORT INFORMATION
  Report Type: Spontaneous
  Country: US (occurrence: US)
  Receive Date: 20240522
  Receipt Date: 20240613
  Transmission Date: 20240715
  Serious: Yes (Other)
  Sender: FDA-Public Use
  Company Number: US-SAREPTA THERAPEUTICS INC.-SRP2024-004645

PATIENT
  Age: 5 Year
  Sex: Male
  Weight: 18 kg

DRUGS (3)
  1. ELEVIDYS [Suspect]
     Active Substance: DELANDISTROGENE MOXEPARVOVEC-ROKL
     Indication: Duchenne muscular dystrophy
     Dosage: 180 MILLILITER, SINGLE
     Route: 042
     Dates: start: 20240506, end: 20240506
  2. PREDNISOLONE [Concomitant]
     Active Substance: PREDNISOLONE
     Indication: Steroid therapy
     Dosage: 27 MILLIGRAM, QD (1.5MG/KG/DAY)
  3. FAMOTIDINE [Concomitant]
     Active Substance: FAMOTIDINE
     Indication: Prophylaxis
     Dosage: 9 MILLIGRAM, BID (0.5MG/KG)

REACTIONS (3)
  - Neutropenia [Recovered/Resolved]
  - Viral infection [Unknown]
  - Pyrexia [Recovered/Resolved]

NARRATIVE: CASE EVENT DATE: 20240507
